FAERS Safety Report 6999885-4 (Version None)
Quarter: 2010Q3

REPORT INFORMATION
  Report Type: 
  Country: None (occurrence: None)
  Receive Date: 20100920
  Receipt Date: 20100329
  Transmission Date: 20110219
  Serious: No
  Sender: FDA-Public Use
  Company Number: US-ASTRAZENECA-2007UW05487

PATIENT
  Age: 18977 Day
  Sex: Female
  Weight: 99.8 kg

DRUGS (26)
  1. SEROQUEL [Suspect]
     Indication: DEPRESSION
     Dosage: 25 MG - 100 MG EVERY DAY
     Route: 048
     Dates: start: 20001128
  2. SEROQUEL [Suspect]
     Indication: INSOMNIA
     Dosage: 25 MG - 100 MG EVERY DAY
     Route: 048
     Dates: start: 20001128
  3. SEROQUEL [Suspect]
     Route: 048
     Dates: start: 20010309, end: 20080416
  4. SEROQUEL [Suspect]
     Route: 048
     Dates: start: 20010309, end: 20080416
  5. SEROQUEL [Suspect]
     Route: 048
     Dates: start: 20020926
  6. SEROQUEL [Suspect]
     Route: 048
     Dates: start: 20020926
  7. RISPERDAL [Concomitant]
     Indication: SLEEP DISORDER
     Dates: start: 20070601, end: 20070701
  8. CELEXA [Concomitant]
     Indication: ANXIETY DISORDER
     Route: 048
     Dates: start: 20001128
  9. HYDROCHLOROTHIAZIDE [Concomitant]
     Route: 048
     Dates: start: 19870717
  10. ALTACE [Concomitant]
     Route: 048
     Dates: start: 20030905
  11. GLUCOPHAGE [Concomitant]
     Dosage: 650-1700 MG EVERY DAY
  12. COUMADIN [Concomitant]
     Route: 048
     Dates: start: 20040721
  13. RESTORIL [Concomitant]
     Dates: start: 20040721
  14. TRIAMTERENE AND HYDROCHLOROTHIAZIDE [Concomitant]
     Dosage: 37.5/25 ONE P.O Q. DAY
     Dates: start: 20040721
  15. ATENOLOL [Concomitant]
     Route: 048
     Dates: start: 20030905
  16. ATENOLOL [Concomitant]
     Route: 048
     Dates: start: 20090211
  17. METFORMIN [Concomitant]
     Route: 048
     Dates: start: 20090211
  18. LIPITOR [Concomitant]
     Route: 048
     Dates: start: 20030905
  19. LIPITOR [Concomitant]
     Route: 048
     Dates: start: 20090211
  20. LIPITOR [Concomitant]
     Dates: start: 20011010
  21. LOTREL [Concomitant]
     Dosage: 5/20 EVERY DAY
     Route: 048
     Dates: start: 20030905
  22. LOTREL [Concomitant]
     Dosage: 10/20, DAILY
     Dates: start: 20090211
  23. NAPROXEN [Concomitant]
     Route: 048
     Dates: start: 20060916
  24. ZOLOFT [Concomitant]
     Route: 048
     Dates: start: 20030905
  25. ZOLOFT [Concomitant]
     Dosage: 10 MG, 2 TABLETS EVERYDAY
     Route: 048
     Dates: start: 20090716
  26. OMEPRAZOLE [Concomitant]
     Route: 048
     Dates: start: 20090716

REACTIONS (5)
  - ARTHROPATHY [None]
  - DIABETES MELLITUS [None]
  - DIABETES MELLITUS INADEQUATE CONTROL [None]
  - TYPE 2 DIABETES MELLITUS [None]
  - WEIGHT INCREASED [None]
